FAERS Safety Report 25301679 (Version 1)
Quarter: 2025Q2

REPORT INFORMATION
  Report Type: Spontaneous
  Country: US (occurrence: US)
  Receive Date: 20250512
  Receipt Date: 20250512
  Transmission Date: 20250717
  Serious: No
  Sender: UCB
  Company Number: US-UCBSA-2024053187

PATIENT
  Sex: Female

DRUGS (2)
  1. CIMZIA [Suspect]
     Active Substance: CERTOLIZUMAB PEGOL
     Indication: Psoriatic arthropathy
     Dosage: 400 MILLIGRAM, EV 2 WEEKS(QOW)
     Route: 058
  2. CIMZIA [Suspect]
     Active Substance: CERTOLIZUMAB PEGOL
     Dosage: 400 MILLIGRAM, EV 4 WEEKS
     Route: 058

REACTIONS (10)
  - Pain in extremity [Unknown]
  - Inflammation [Unknown]
  - Vomiting [Unknown]
  - Myalgia [Unknown]
  - Taste disorder [Unknown]
  - Psoriasis [Unknown]
  - Nausea [Unknown]
  - Product dose omission issue [Unknown]
  - Drug ineffective [Unknown]
  - Treatment failure [Unknown]
